FAERS Safety Report 16501975 (Version 1)
Quarter: 2019Q3

REPORT INFORMATION
  Report Type: Spontaneous
  Country: ES (occurrence: ES)
  Receive Date: 20190701
  Receipt Date: 20190701
  Transmission Date: 20191004
  Serious: Yes (Other)
  Sender: FDA-Public Use
  Company Number: ES-PCCINC-2019-PEL-000199

PATIENT

DRUGS (6)
  1. PHENYLEPHRINE [Suspect]
     Active Substance: PHENYLEPHRINE HYDROCHLORIDE
     Indication: PAIN MANAGEMENT
     Dosage: UNK
     Route: 064
  2. SEVOFLURANO PIRAMAL {100%} LIQUIDO PARA INHALACION DEL VAPOR [Suspect]
     Active Substance: SEVOFLURANE
     Indication: ANAESTHESIA
     Dosage: UNK
     Route: 064
  3. ATROPINE. [Suspect]
     Active Substance: ATROPINE
     Indication: ANAESTHESIA PROCEDURE
     Dosage: 0.01 MILLIGRAM/KILOGRAM
     Route: 030
  4. VECURONIUM [Suspect]
     Active Substance: VECURONIUM BROMIDE
     Indication: ANAESTHESIA PROCEDURE
     Dosage: 0.2 MICROGRAM/KILOGRAM
     Route: 030
  5. REMIFENTANIL [Suspect]
     Active Substance: REMIFENTANIL
     Indication: PAIN MANAGEMENT
     Dosage: UNK
     Route: 064
  6. FENTANYL. [Suspect]
     Active Substance: FENTANYL
     Indication: ANAESTHESIA PROCEDURE
     Dosage: 10-20 MICROGRAM/KILOGRAM
     Route: 030

REACTIONS (4)
  - Bradycardia foetal [Recovered/Resolved]
  - Anaesthetic complication [Recovered/Resolved]
  - Foetal exposure during pregnancy [Unknown]
  - Procedural pain [Recovered/Resolved]
